FAERS Safety Report 14471454 (Version 6)
Quarter: 2019Q2

REPORT INFORMATION
  Report Type: Spontaneous
  Country: US (occurrence: US)
  Receive Date: 20180131
  Receipt Date: 20190503
  Transmission Date: 20190711
  Serious: Yes (Hospitalization)
  Sender: FDA-Public Use
  Company Number: US-PFIZER INC-2018038702

PATIENT
  Age: 73 Year
  Sex: Female

DRUGS (7)
  1. NORCO [Concomitant]
     Active Substance: ACETAMINOPHEN\HYDROCODONE BITARTRATE
     Indication: INTERVERTEBRAL DISC DEGENERATION
     Dosage: 2 DF, 3X/DAY (2 TABLETS (DF), EVERY 8 HOURS)
  2. CALCIUM VIT D [Concomitant]
     Active Substance: CALCIUM\CHOLECALCIFEROL
     Indication: OVARIAN CANCER
  3. LYRICA [Suspect]
     Active Substance: PREGABALIN
     Dosage: 100 MG, TWICE DAILY
     Route: 048
     Dates: start: 20190425
  4. PRAVACHOL [Concomitant]
     Active Substance: PRAVASTATIN SODIUM
     Indication: MYOCARDIAL ISCHAEMIA
     Dosage: 40 MG, DAILY (40 MG (1 DF), DAILY)
  5. CALCIUM VIT D [Concomitant]
     Active Substance: CALCIUM\CHOLECALCIFEROL
     Indication: OSTEOPOROSIS
     Dosage: 1 DF, 2X/DAY (1 DF, TWICE DAILY)
     Dates: start: 2016
  6. SENNA LAXATIVE [Concomitant]
     Active Substance: SENNOSIDES
     Indication: OVARIAN CANCER
     Dosage: 8.6 MG, 2X/DAY (8.6 MG (1 DF), TWICE DAILY)
     Dates: start: 2016
  7. LYRICA [Suspect]
     Active Substance: PREGABALIN
     Indication: MYALGIA
     Dosage: 100 MG, TWICE DAILY
     Dates: start: 2016

REACTIONS (2)
  - Product use in unapproved indication [Unknown]
  - Neoplasm recurrence [Not Recovered/Not Resolved]

NARRATIVE: CASE EVENT DATE: 2016
